FAERS Safety Report 23615342 (Version 1)
Quarter: 2024Q1

REPORT INFORMATION
  Report Type: Spontaneous
  Country: US (occurrence: US)
  Receive Date: 20240311
  Receipt Date: 20240311
  Transmission Date: 20240409
  Serious: No
  Sender: FDA-Public Use
  Company Number: US-AMGEN-USASP2024046916

PATIENT
  Age: 19 Year
  Sex: Female

DRUGS (2)
  1. ERENUMAB [Suspect]
     Active Substance: ERENUMAB
     Indication: Migraine without aura
     Dosage: UNK
     Route: 065
  2. GOLIMUMAB [Concomitant]
     Active Substance: GOLIMUMAB
     Indication: Rheumatoid arthritis
     Dosage: UNK

REACTIONS (1)
  - Constipation [Unknown]
